FAERS Safety Report 5885450-9 (Version None)
Quarter: 2008Q3

REPORT INFORMATION
  Report Type: 
  Country: None (occurrence: None)
  Receive Date: 20080916
  Receipt Date: 20080909
  Transmission Date: 20090109
  Serious: Yes (Other)
  Sender: FDA-Public Use
  Company Number: AU-ABBOTT-08P-008-0475363-00

PATIENT
  Sex: Male
  Weight: 83 kg

DRUGS (9)
  1. LIPIDIL [Suspect]
     Indication: MIXED HYPERLIPIDAEMIA
     Route: 048
     Dates: start: 20080312, end: 20080705
  2. ROSUVASTATIN [Concomitant]
     Indication: BLOOD CHOLESTEROL
     Route: 048
  3. LEVOTHYROXINE SODIUM [Concomitant]
     Indication: THYROID DISORDER
     Route: 048
  4. METFORMIN HCL [Concomitant]
     Indication: DIABETES MELLITUS
     Route: 048
  5. NORTRIPTYLINE HCL [Concomitant]
     Indication: DEPRESSION
     Route: 048
  6. VALPROATE SODIUM [Concomitant]
     Indication: DEPRESSION
     Route: 048
  7. QUETIAPINE [Concomitant]
     Indication: BIPOLAR DISORDER
     Route: 048
  8. PANTOPRAZOLE SODIUM [Concomitant]
     Indication: GASTROOESOPHAGEAL REFLUX DISEASE
     Route: 048
  9. ASPIRIN [Concomitant]
     Indication: DRUG USE FOR UNKNOWN INDICATION
     Route: 048

REACTIONS (1)
  - RENAL FAILURE [None]
